FAERS Safety Report 22215859 (Version 1)
Quarter: 2023Q2

REPORT INFORMATION
  Report Type: Spontaneous
  Country: US (occurrence: US)
  Receive Date: 20230417
  Receipt Date: 20230417
  Transmission Date: 20230721
  Serious: No
  Sender: FDA-Public Use
  Company Number: US-drreddys-SPO/USA/23/0162849

PATIENT
  Age: 15 Year
  Sex: Female

DRUGS (2)
  1. ZENATANE [Suspect]
     Active Substance: ISOTRETINOIN
     Indication: Product used for unknown indication
     Dosage: RMA ISSUE DATE: 29 SEPTEMBER 2022 09:46:23 AM, 28 OCTOBER 2022 09:01:42 AM, 12 JANUARY 2022 09:49:43
  2. ZENATANE [Suspect]
     Active Substance: ISOTRETINOIN
     Dosage: RMA ISSUE DATE: 09 JANUARY 2023 02:44:58 PM, 13 FEBRUARY 2023 10:23:41 AM

REACTIONS (1)
  - Adverse drug reaction [Unknown]
